FAERS Safety Report 9203129 (Version 1)
Quarter: 2013Q1

REPORT INFORMATION
  Report Type: Spontaneous
  Country: GB (occurrence: None)
  Receive Date: 20130328
  Receipt Date: 20130328
  Transmission Date: 20140127
  Serious: Yes (Life-Threatening, Other)
  Sender: FDA-Public Use
  Company Number: 2013-05276

PATIENT
  Age: 85 Year
  Sex: Female

DRUGS (10)
  1. DONEPEZIL HYDROCHLORIDE [Suspect]
     Route: 048
     Dates: start: 20130222, end: 20130225
  2. CO-CODAMOL [Suspect]
  3. SENNA (SENNA ALEXANDRINA) [Concomitant]
  4. SIMVASTATIN (SIMVASTATIN) [Concomitant]
  5. ATENOLOL (ATENOLOL) [Concomitant]
  6. AMLODIPINE (AMLODIPINE BESILATE) [Concomitant]
  7. LACTULOSE (LACTULOSE) [Concomitant]
  8. GAVISCON (ALGINIC ACID, ALUMINIUM HYDROXIDE GEL, DRIED, MAGNESIUM TRISILICATE, SODIUM ALGINATE, SODIUM BICARBONATE) [Concomitant]
  9. XALACO (LATANOPROST, TIMOLOL MALEATE) [Concomitant]
  10. HYPROMELLOSE PHTHALATE (HYPROMELLOSE PHTALATE) [Concomitant]

REACTIONS (5)
  - Convulsion [None]
  - Respiratory rate increased [None]
  - Muscle rigidity [None]
  - Loss of consciousness [None]
  - Tremor [None]
